FAERS Safety Report 18185651 (Version 1)
Quarter: 2020Q3

REPORT INFORMATION
  Report Type: Spontaneous
  Country: US (occurrence: US)
  Receive Date: 20200821
  Receipt Date: 20200821
  Transmission Date: 20201103
  Serious: Yes (Hospitalization)
  Sender: FDA-Public Use
  Company Number: None

PATIENT
  Age: 77 Year
  Sex: Male
  Weight: 87.75 kg

DRUGS (18)
  1. HYDRALAZINE [Concomitant]
     Active Substance: HYDRALAZINE HYDROCHLORIDE
  2. MIRALAX [Concomitant]
     Active Substance: POLYETHYLENE GLYCOL 3350
  3. PANTOPRAZOLE [Concomitant]
     Active Substance: PANTOPRAZOLE
  4. ULORIC [Concomitant]
     Active Substance: FEBUXOSTAT
  5. COTELLIC [Suspect]
     Active Substance: COBIMETINIB
     Indication: MALIGNANT MELANOMA
     Dosage: ?          OTHER FREQUENCY:DAILY X 21 DAYS 7;?
     Route: 048
  6. ERGOCALCIFEROL. [Concomitant]
     Active Substance: ERGOCALCIFEROL
  7. KEPPRA [Concomitant]
     Active Substance: LEVETIRACETAM
  8. PROMETHAZINE [Concomitant]
     Active Substance: PROMETHAZINE HYDROCHLORIDE
  9. AMLODIPINE [Concomitant]
     Active Substance: AMLODIPINE BESYLATE
  10. GABAPENTIN. [Concomitant]
     Active Substance: GABAPENTIN
  11. CALCIUM [Concomitant]
     Active Substance: CALCIUM
  12. TAMSULOSIN [Concomitant]
     Active Substance: TAMSULOSIN
  13. ZELBORAF [Suspect]
     Active Substance: VEMURAFENIB
     Indication: MALIGNANT MELANOMA
     Route: 048
  14. CLONAZEPAM. [Concomitant]
     Active Substance: CLONAZEPAM
  15. DULOXETINE. [Concomitant]
     Active Substance: DULOXETINE
  16. CLOBETASOL [Concomitant]
     Active Substance: CLOBETASOL
  17. TESTOSTERONE. [Concomitant]
     Active Substance: TESTOSTERONE
  18. PERCOCET [Concomitant]
     Active Substance: ACETAMINOPHEN\OXYCODONE HYDROCHLORIDE

REACTIONS (1)
  - Confusional state [None]

NARRATIVE: CASE EVENT DATE: 20200821
